FAERS Safety Report 10995210 (Version 1)
Quarter: 2015Q2

REPORT INFORMATION
  Report Type: Report from Study
  Country: US (occurrence: US)
  Receive Date: 20150407
  Receipt Date: 20150407
  Transmission Date: 20150821
  Serious: Yes (Other)
  Sender: FDA-Public Use
  Company Number: US-ASTRAZENECA-2015SE31095

PATIENT
  Sex: Male

DRUGS (3)
  1. SYMBICORT [Suspect]
     Active Substance: BUDESONIDE\FORMOTEROL FUMARATE DIHYDRATE
     Indication: CHRONIC OBSTRUCTIVE PULMONARY DISEASE
     Dosage: DOSE AND FREQUENCY UNKNOWN
     Route: 055
  2. UNSPECIFIED DIURETIC [Concomitant]
     Active Substance: UNSPECIFIED INGREDIENT
     Indication: DIURETIC THERAPY
  3. CARVEDILOL. [Concomitant]
     Active Substance: CARVEDILOL
     Indication: DRUG THERAPY

REACTIONS (10)
  - Peripheral vascular disorder [Unknown]
  - Drug ineffective [Unknown]
  - Cardiac failure congestive [Unknown]
  - Blood creatinine abnormal [Unknown]
  - Fungal infection [Unknown]
  - Renal failure [Unknown]
  - Atrial fibrillation [Unknown]
  - Liver disorder [Unknown]
  - Coronary artery disease [Unknown]
  - Cardiac hypertrophy [Unknown]
